FAERS Safety Report 26125199 (Version 2)
Quarter: 2025Q4

REPORT INFORMATION
  Report Type: Spontaneous
  Country: US (occurrence: US)
  Receive Date: 20251205
  Receipt Date: 20251211
  Transmission Date: 20260118
  Serious: Yes (Hospitalization)
  Sender: DR REDDYS
  Company Number: None

PATIENT
  Age: 59 Year
  Sex: Male

DRUGS (2)
  1. CIPROFLOXACIN [Suspect]
     Active Substance: CIPROFLOXACIN
     Indication: Ear infection
     Dosage: ORAL AND OTIC CIPROFLOXACIN FOR A RIGHT EAR INFECTION FOR 7 DAYS
     Route: 048
  2. CIPROFLOXACIN [Suspect]
     Active Substance: CIPROFLOXACIN
     Dosage: ORAL AND OTIC CIPROFLOXACIN FOR A RIGHT EAR INFECTION FOR 7 DAYS
     Route: 001

REACTIONS (2)
  - Hypoglycaemia [Recovered/Resolved]
  - Seizure [Unknown]
